FAERS Safety Report 9869949 (Version 1)
Quarter: 2014Q1

REPORT INFORMATION
  Report Type: Spontaneous
  Country: US (occurrence: None)
  Receive Date: 20140203
  Receipt Date: 20140203
  Transmission Date: 20141002
  Serious: Yes (Hospitalization, Other)
  Sender: FDA-Public Use
  Company Number: SYM-2014-15956

PATIENT
  Age: 18 Year
  Sex: Male

DRUGS (1)
  1. XENAZINE [Suspect]
     Indication: PRODUCT USED FOR UNKNOWN INDICATION
     Dosage: 4 TABLETS EVERY MORNING AND 3 TABLETS AT NIGHT
     Dates: start: 2009

REACTIONS (1)
  - Incorrect dose administered [None]
